APPROVED DRUG PRODUCT: FARXIGA
Active Ingredient: DAPAGLIFLOZIN
Strength: 10MG
Dosage Form/Route: TABLET;ORAL
Application: N202293 | Product #002
Applicant: ASTRAZENECA AB
Approved: Jan 8, 2014 | RLD: Yes | RS: Yes | Type: RX

PATENTS:
Patent 8329648 | Expires: Aug 18, 2026
Patent 8361972 | Expires: Mar 21, 2028
Patent 6515117 | Expires: Oct 4, 2025
Patent 8501698 | Expires: Jun 20, 2027
Patent 8685934 | Expires: May 26, 2030
Patent 8361972 | Expires: Mar 21, 2028
Patent 8329648 | Expires: Aug 18, 2026
Patent 8906851 | Expires: Aug 18, 2026
Patent 10973836 | Expires: Mar 9, 2040
Patent 12213988 | Expires: Apr 1, 2041
Patent 12409186 | Expires: Apr 1, 2041
Patent 12472194 | Expires: Jul 18, 2039
Patent 8329648 | Expires: Aug 18, 2026
Patent 11826376 | Expires: Jul 18, 2039
Patent 11903955 | Expires: Mar 9, 2040
Patent 6515117 | Expires: Oct 4, 2025
Patent 8221786 | Expires: Mar 21, 2028
Patent 7851502 | Expires: Aug 19, 2028
Patent 8721615 | Expires: Jan 18, 2030
Patent 7919598 | Expires: Dec 16, 2029
Patent 8716251 | Expires: Mar 21, 2028
Patent 8361972*PED | Expires: Sep 21, 2028
Patent 8501698*PED | Expires: Dec 20, 2027
Patent 7851502*PED | Expires: Feb 19, 2029
Patent 6515117*PED | Expires: Apr 4, 2026
Patent 7919598*PED | Expires: Jun 16, 2030
Patent 8221786*PED | Expires: Sep 21, 2028
Patent 8716251*PED | Expires: Sep 21, 2028
Patent 8685934*PED | Expires: Nov 26, 2030
Patent 8329648*PED | Expires: Feb 18, 2027
Patent 8721615*PED | Expires: Jul 18, 2030
Patent 8906851*PED | Expires: Feb 18, 2027
Patent 12472194*PED | Expires: Jan 18, 2040
Patent 11826376*PED | Expires: Jan 18, 2040
Patent 11903955*PED | Expires: Sep 9, 2040
Patent 10973836*PED | Expires: Sep 9, 2040
Patent 12409186*PED | Expires: Oct 1, 2041
Patent 12213988*PED | Expires: Oct 1, 2041

EXCLUSIVITY:
Code: PED | Date: Nov 8, 2026
Code: PED | Date: Dec 12, 2027
Code: M-298 | Date: May 8, 2026
Code: NPP | Date: Jun 12, 2027